FAERS Safety Report 8336302-6 (Version None)
Quarter: 2012Q2

REPORT INFORMATION
  Report Type: 
  Country: None (occurrence: None)
  Receive Date: 20120504
  Receipt Date: 20120425
  Transmission Date: 20120825
  Serious: No
  Sender: FDA-Public Use
  Company Number: PHEH2012US005697

PATIENT
  Sex: Female

DRUGS (3)
  1. PROBIOTICS [Concomitant]
  2. MAGNESIUM [Concomitant]
     Indication: HYPOMAGNESAEMIA
  3. TASIGNA [Suspect]
     Indication: CHRONIC MYELOID LEUKAEMIA
     Dosage: 300 MG, BID
     Route: 048
     Dates: start: 20120202

REACTIONS (7)
  - INCORRECT DOSE ADMINISTERED [None]
  - WEIGHT DECREASED [None]
  - NAUSEA [None]
  - HYPERSENSITIVITY [None]
  - FATIGUE [None]
  - DECREASED APPETITE [None]
  - ABDOMINAL DISCOMFORT [None]
